FAERS Safety Report 12120277 (Version 1)
Quarter: 2016Q1

REPORT INFORMATION
  Report Type: Report from Study
  Country: US (occurrence: BW)
  Receive Date: 20160226
  Receipt Date: 20160226
  Transmission Date: 20160526
  Serious: Yes (Death)
  Sender: FDA-Public Use
  Company Number: BW-B.I. PHARMACEUTICALS,INC./RIDGEFIELD-2016-BI-11882BI

PATIENT
  Sex: Female

DRUGS (4)
  1. VIRAMUNE [Suspect]
     Active Substance: NEVIRAPINE
     Dosage: 200 MG
     Route: 065
  2. VIRAMUNE [Suspect]
     Active Substance: NEVIRAPINE
     Indication: PROPHYLAXIS AGAINST HIV INFECTION
     Dosage: 400 MG
     Route: 065
  3. ZIDOVUDINE. [Suspect]
     Active Substance: ZIDOVUDINE
     Indication: PROPHYLAXIS AGAINST HIV INFECTION
     Dosage: 600 MG
     Route: 065
  4. LAMIVUDINE. [Suspect]
     Active Substance: LAMIVUDINE
     Indication: PROPHYLAXIS AGAINST HIV INFECTION
     Dosage: 300 MG
     Route: 065

REACTIONS (1)
  - Pneumocystis jirovecii pneumonia [Fatal]
